FAERS Safety Report 21196609 (Version 1)
Quarter: 2022Q3

REPORT INFORMATION
  Report Type: Spontaneous
  Country: US (occurrence: None)
  Receive Date: 20220810
  Receipt Date: 20220810
  Transmission Date: 20221027
  Serious: No
  Sender: FDA-Public Use
  Company Number: None

PATIENT
  Age: 34 Year
  Sex: Female

DRUGS (2)
  1. SKYRIZI [Suspect]
     Active Substance: RISANKIZUMAB-RZAA
     Indication: Dermatitis
     Dosage: FREQUENCY : AS DIRECTED;?INJECT 150MG (1 PEN) SUBCUTANEOUSLY AT WEEK O AND?WEEK 4 AS DIRECTED.?
     Route: 058
     Dates: start: 202205
  2. SKYRIZI [Suspect]
     Active Substance: RISANKIZUMAB-RZAA
     Indication: Psoriasis

REACTIONS (1)
  - Cyst [None]
